FAERS Safety Report 4839899-3 (Version None)
Quarter: 2005Q4

REPORT INFORMATION
  Report Type: 
  Country: None (occurrence: None)
  Receive Date: 20051129
  Receipt Date: 20051118
  Transmission Date: 20060501
  Serious: Yes (Hospitalization)
  Sender: FDA-Public Use
  Company Number: FR-ROCHE-425355

PATIENT
  Age: 35 Year
  Sex: Male
  Weight: 85.5 kg

DRUGS (5)
  1. DACLIZUMAB [Suspect]
     Dosage: GIVEN ON DAY 0.
     Route: 065
  2. DACLIZUMAB [Suspect]
     Dosage: GIVEN ON DAY 14.
     Route: 065
  3. MYCOPHENOLATE MOFETIL [Suspect]
     Route: 048
     Dates: start: 20050413
  4. CYCLOSPORINE [Suspect]
     Route: 048
     Dates: start: 20050414
  5. STEROIDS NOS [Suspect]
     Route: 048

REACTIONS (1)
  - CYTOMEGALOVIRUS INFECTION [None]
